FAERS Safety Report 5408514-2 (Version None)
Quarter: 2007Q3

REPORT INFORMATION
  Report Type: 
  Country: None (occurrence: None)
  Receive Date: 20070806
  Receipt Date: 20070801
  Transmission Date: 20080115
  Serious: Yes (Hospitalization)
  Sender: FDA-Public Use
  Company Number: DSU-2007-00084

PATIENT
  Age: 51 Year
  Sex: Female

DRUGS (5)
  1. FLOXIN OTIC [Suspect]
     Indication: OTITIS EXTERNA
     Dosage: 20 GTT (10 GTT, 10 DROPS  2 TIMES PER DAY), AURICULAR (OTIC)
     Dates: start: 20070123, end: 20070126
  2. VITAMIN B (VITAMIN B) [Concomitant]
  3. VITAMIN C (ASCORBIC ACID) (ASCORBIC ACID) [Concomitant]
  4. CALCIUM (CALCIUM) (CALCIUM) [Concomitant]
  5. MULTIVITAMIN (ERGOCALCIFEROL, ACORBIC ACID, FOLIC AICD, THIAMINE HYDOC [Concomitant]

REACTIONS (4)
  - ASTHENIA [None]
  - EYE DISORDER [None]
  - PAIN [None]
  - TENDON RUPTURE [None]
